FAERS Safety Report 8500935-4 (Version None)
Quarter: 2012Q3

REPORT INFORMATION
  Report Type: 
  Country: None (occurrence: None)
  Receive Date: 20120710
  Receipt Date: 20120703
  Transmission Date: 20120928
  Serious: Yes (Disabling)
  Sender: FDA-Public Use
  Company Number: AT-ROCHE-1085920

PATIENT
  Age: 65 Year
  Sex: Male
  Weight: 52 kg

DRUGS (7)
  1. CREON [Concomitant]
  2. LUCENTIS [Suspect]
     Indication: DIABETIC RETINOPATHY
     Route: 050
     Dates: start: 20110921
  3. LUCENTIS [Suspect]
     Route: 050
     Dates: start: 20120316
  4. ROCALTROL [Concomitant]
     Dates: start: 20110801
  5. NOVOLOG MIX 70/30 [Concomitant]
     Dosage: 3D AC.
     Dates: start: 20110801
  6. PANTOPRAZOLE SODIUM [Concomitant]
  7. NORVASC [Concomitant]

REACTIONS (1)
  - RENAL FAILURE [None]
